FAERS Safety Report 10442767 (Version 4)
Quarter: 2015Q1

REPORT INFORMATION
  Report Type: Spontaneous
  Country: US (occurrence: US)
  Receive Date: 20140909
  Receipt Date: 20150129
  Transmission Date: 20150720
  Serious: No
  Sender: FDA-Public Use
  Company Number: US-PFIZER INC-2014001220

PATIENT
  Age: 65 Year
  Sex: Female
  Weight: 54 kg

DRUGS (11)
  1. LYRICA [Suspect]
     Active Substance: PREGABALIN
     Dosage: 50 MG, 1X/DAY (AT BED)
     Route: 048
  2. PROCARDIA [Concomitant]
     Active Substance: NIFEDIPINE
     Dosage: 120 MG, DAILY (60 MG, TWO TABLETS DAILY)
  3. LORAZEPAM. [Concomitant]
     Active Substance: LORAZEPAM
     Dosage: UNK
  4. LYRICA [Suspect]
     Active Substance: PREGABALIN
     Indication: NEUROPATHY PERIPHERAL
     Dosage: 100 MG, 3X/DAY
     Dates: end: 20140828
  5. CARVEDILOL. [Concomitant]
     Active Substance: CARVEDILOL
     Dosage: UNK
  6. FOSRENOL [Concomitant]
     Active Substance: LANTHANUM CARBONATE
     Dosage: UNK
  7. DOXAZOSIN [Concomitant]
     Active Substance: DOXAZOSIN\DOXAZOSIN MESYLATE
     Dosage: UNK
  8. PROCARDIA XL [Concomitant]
     Active Substance: NIFEDIPINE
     Dosage: 120 MG, 2X/DAY
     Route: 048
  9. PROCARDIA XL [Concomitant]
     Active Substance: NIFEDIPINE
     Dosage: 60 MG, 2X/DAY
     Route: 048
  10. TYLENOL [Concomitant]
     Active Substance: ACETAMINOPHEN
     Dosage: UNK
  11. NEXIUM [Concomitant]
     Active Substance: ESOMEPRAZOLE MAGNESIUM
     Dosage: UNK

REACTIONS (3)
  - Drug withdrawal syndrome [Unknown]
  - Depression [Unknown]
  - Diarrhoea [Unknown]

NARRATIVE: CASE EVENT DATE: 2014
